FAERS Safety Report 7064704-7 (Version None)
Quarter: 2010Q4

REPORT INFORMATION
  Report Type: 
  Country: None (occurrence: None)
  Receive Date: 20101027
  Receipt Date: 20101020
  Transmission Date: 20110411
  Serious: Yes (Hospitalization)
  Sender: FDA-Public Use
  Company Number: US-US-EMD SERONO, INC.-7020761

PATIENT
  Sex: Male
  Weight: 97 kg

DRUGS (14)
  1. REBIF [Suspect]
     Indication: MULTIPLE SCLEROSIS
     Route: 058
     Dates: start: 20090501
  2. TRICOR [Concomitant]
  3. FAMOTIDINE [Concomitant]
  4. BACLOFEN [Concomitant]
  5. VERAPAMIL [Concomitant]
  6. LUTEN [Concomitant]
  7. FOLIC ACID [Concomitant]
  8. GABAPENTIN [Concomitant]
  9. OXYCODONE HCL [Concomitant]
  10. ELAVIL [Concomitant]
  11. ZOLOFT [Concomitant]
  12. FLOMAX [Concomitant]
  13. ULTRAM [Concomitant]
  14. RESTORIL [Concomitant]

REACTIONS (4)
  - FATIGUE [None]
  - INJECTION SITE PAIN [None]
  - INJECTION SITE REACTION [None]
  - MANIA [None]
